FAERS Safety Report 9408332 (Version 1)
Quarter: 2013Q3

REPORT INFORMATION
  Report Type: Spontaneous
  Country: CZ (occurrence: CZ)
  Receive Date: 20130718
  Receipt Date: 20130718
  Transmission Date: 20140515
  Serious: Yes (Life-Threatening, Hospitalization)
  Sender: FDA-Public Use
  Company Number: CZ-GLAXOSMITHKLINE-B0907927A

PATIENT
  Age: 59 Year
  Sex: Male

DRUGS (3)
  1. VOTRIENT [Suspect]
     Indication: PRODUCT USED FOR UNKNOWN INDICATION
     Route: 065
  2. INSULIN [Concomitant]
     Indication: DIABETES MELLITUS
     Route: 065
  3. CORTICOIDS [Concomitant]
     Indication: PROPHYLAXIS
     Route: 065

REACTIONS (5)
  - Asphyxia [Recovered/Resolved]
  - Oral candidiasis [Recovered/Resolved]
  - Pharyngeal oedema [Recovered/Resolved]
  - Dysphagia [Recovered/Resolved]
  - Pyrexia [Recovered/Resolved]
